FAERS Safety Report 14068600 (Version 2)
Quarter: 2017Q4

REPORT INFORMATION
  Report Type: Spontaneous
  Country: US (occurrence: US)
  Receive Date: 20171010
  Receipt Date: 20171129
  Transmission Date: 20180321
  Serious: No
  Sender: FDA-Public Use
  Company Number: US-PFIZER INC-2017435691

PATIENT
  Age: 23 Year
  Sex: Male
  Weight: 102 kg

DRUGS (1)
  1. PRALIDOXIME CHLORIDE. [Suspect]
     Active Substance: PRALIDOXIME CHLORIDE
     Dosage: UNK
     Dates: start: 20171005, end: 20171005

REACTIONS (3)
  - Accidental exposure to product [Recovered/Resolved]
  - Expired product administered [Recovered/Resolved]
  - Blood pressure increased [Recovered/Resolved]

NARRATIVE: CASE EVENT DATE: 20171005
